FAERS Safety Report 4645257-7 (Version None)
Quarter: 2005Q2

REPORT INFORMATION
  Report Type: 
  Country: None (occurrence: None)
  Receive Date: 20050331
  Receipt Date: 20050120
  Transmission Date: 20051028
  Serious: Yes (Hospitalization)
  Sender: FDA-Public Use
  Company Number: 04P-163-0280785-00

PATIENT
  Age: 64 Year
  Sex: Female
  Weight: 76.2043 kg

DRUGS (17)
  1. HUMIRA [Suspect]
     Indication: RHEUMATOID ARTHRITIS
     Dosage: SEE IMAGE
     Route: 058
     Dates: start: 20040701, end: 20040801
  2. HUMIRA [Suspect]
     Indication: RHEUMATOID ARTHRITIS
     Dosage: SEE IMAGE
     Route: 058
     Dates: start: 20040101, end: 20040901
  3. HUMIRA [Suspect]
     Indication: RHEUMATOID ARTHRITIS
     Dosage: SEE IMAGE
     Route: 058
     Dates: start: 20041102, end: 20041201
  4. HUMIRA [Suspect]
     Indication: RHEUMATOID ARTHRITIS
     Dosage: SEE IMAGE
     Route: 058
     Dates: start: 20041201
  5. METOPROLOL SUCCINATE [Concomitant]
  6. ACETYL SALICYLIC ACID USP BAT [Concomitant]
  7. CLOPIDOGREL BISULFATE [Concomitant]
  8. LISINOPRIL [Concomitant]
  9. SIMVASTATIN [Concomitant]
  10. PREDNISONE TAB [Concomitant]
  11. ESOMEPRAZOLE [Concomitant]
  12. PIOGLITAZONE HCL [Concomitant]
  13. VICODIN [Concomitant]
  14. AMIODARONE HYDROCHLORIDE [Concomitant]
  15. PANTOPRAZOLE [Concomitant]
  16. SIMVASTATIN [Concomitant]
  17. FAMOTIDINE [Concomitant]

REACTIONS (5)
  - CONTUSION [None]
  - DRY SKIN [None]
  - MYOCARDIAL INFARCTION [None]
  - RASH [None]
  - WHEEZING [None]
